FAERS Safety Report 9970285 (Version 2)
Quarter: 2014Q3

REPORT INFORMATION
  Report Type: Spontaneous
  Country: IT (occurrence: IT)
  Receive Date: 20140306
  Receipt Date: 20140713
  Transmission Date: 20150326
  Serious: Yes (Hospitalization)
  Sender: FDA-Public Use
  Company Number: IT-BRISTOL-MYERS SQUIBB COMPANY-20307583

PATIENT
  Age: 74 Year
  Sex: Female

DRUGS (6)
  1. CARDICOR [Concomitant]
     Active Substance: BISOPROLOL
  2. TORVAST [Concomitant]
     Active Substance: ATORVASTATIN
  3. COUMADIN [Suspect]
     Active Substance: WARFARIN SODIUM
     Indication: ATRIAL FIBRILLATION
     Dosage: 1 DF=1 UNIT NOS?INTER-26JUN13
     Route: 048
     Dates: start: 20130101
  4. PLAVIX [Suspect]
     Active Substance: CLOPIDOGREL BISULFATE
     Route: 048
     Dates: start: 20120101, end: 20130626
  5. LASIX [Concomitant]
     Active Substance: FUROSEMIDE
     Dosage: 1 DF=500 MG + 25 MG TABS
  6. VALPRESSION [Concomitant]
     Active Substance: VALSARTAN

REACTIONS (5)
  - Syncope [Unknown]
  - Metabolic acidosis [Unknown]
  - Subdural haematoma [Unknown]
  - Head injury [Unknown]
  - Gastrointestinal haemorrhage [Unknown]

NARRATIVE: CASE EVENT DATE: 20130626
